FAERS Safety Report 9150212 (Version 1)
Quarter: 2013Q1

REPORT INFORMATION
  Report Type: Spontaneous
  Country: US (occurrence: None)
  Receive Date: 20130204
  Receipt Date: 20130204
  Transmission Date: 20140127
  Serious: Yes (Other)
  Sender: FDA-Public Use
  Company Number: 2013EXPUS00067

PATIENT
  Age: 33 Year
  Sex: Female
  Weight: 50.3 kg

DRUGS (1)
  1. EXPAREL (BUPIVACAINE) LIPOSOME INJECTABLE SUSPENSION, MG/ML [Suspect]
     Indication: POSTOPERATIVE ANALGESIA
     Dates: start: 20121210, end: 20121210

REACTIONS (2)
  - Post procedural haematoma [None]
  - Breast haematoma [None]
